FAERS Safety Report 9486481 (Version 2)
Quarter: 2013Q3

REPORT INFORMATION
  Report Type: Report from Study
  Country: US (occurrence: US)
  Receive Date: 20130829
  Receipt Date: 20130924
  Transmission Date: 20140515
  Serious: Yes (Hospitalization)
  Sender: FDA-Public Use
  Company Number: US-ROCHE-1266172

PATIENT
  Age: 69 Year
  Sex: Male
  Weight: 124 kg

DRUGS (3)
  1. BEVACIZUMAB [Suspect]
     Indication: NON-SMALL CELL LUNG CANCER
     Dosage: 15 MG/KG IV OVER 30-90 MIN ON DAY 1 LAST ADMINISTERED DATE:11/JUL/2013.
     Route: 042
     Dates: start: 20130314
  2. PEMETREXED [Suspect]
     Indication: NON-SMALL CELL LUNG CANCER
     Dosage: 500 MG/M2 IV OVER 10 MIN ON DAY 1 ;LAST ADMINISTERED DATE: 30/MAY/2013
     Route: 042
     Dates: start: 20130314
  3. CISPLATIN [Suspect]
     Indication: NON-SMALL CELL LUNG CANCER
     Dosage: 75 MG/M2 IV OVER 60 MIN ON DAY 1 LAST DATE ADMINISTERED :  30/MAY/2013
     Route: 042
     Dates: start: 20130314

REACTIONS (8)
  - Syncope [Recovered/Resolved]
  - Muscular weakness [Unknown]
  - Abdominal pain [Recovered/Resolved]
  - Diarrhoea [Recovered/Resolved]
  - Nausea [Recovered/Resolved]
  - Hypotension [Recovered/Resolved]
  - Hyponatraemia [Recovered/Resolved]
  - Syncope [Recovered/Resolved]
